FAERS Safety Report 9708697 (Version 1)
Quarter: 2013Q4

REPORT INFORMATION
  Report Type: Spontaneous
  Country: US (occurrence: US)
  Receive Date: 20131125
  Receipt Date: 20131125
  Transmission Date: 20140711
  Serious: Yes (Death)
  Sender: FDA-Public Use
  Company Number: US-BRISTOL-MYERS SQUIBB COMPANY-19834050

PATIENT
  Age: 30 Year
  Sex: Male

DRUGS (1)
  1. BARACLUDE TABS 1.0 MG [Suspect]
     Indication: HEPATITIS B
     Dates: start: 20120724, end: 201309

REACTIONS (1)
  - Death [Fatal]
